FAERS Safety Report 6330296-0 (Version None)
Quarter: 2009Q3

REPORT INFORMATION
  Report Type: 
  Country: None (occurrence: None)
  Receive Date: 20090827
  Receipt Date: 20090625
  Transmission Date: 20100115
  Serious: No
  Sender: FDA-Public Use
  Company Number: US-KINGPHARMUSA00001-K200900759

PATIENT
  Age: 78 Year
  Sex: Female

DRUGS (2)
  1. FLECTOR [Suspect]
     Indication: SCIATICA
     Dosage: 1 PATCH, BID
     Route: 061
     Dates: start: 20090101, end: 20090601
  2. FOSAMAX [Concomitant]
     Dosage: UNK

REACTIONS (2)
  - FATIGUE [None]
  - GASTRIC ULCER [None]
